FAERS Safety Report 7338923-6 (Version None)
Quarter: 2011Q1

REPORT INFORMATION
  Report Type: 
  Country: None (occurrence: None)
  Receive Date: 20110308
  Receipt Date: 20110223
  Transmission Date: 20110831
  Serious: Yes (Life-Threatening, Hospitalization)
  Sender: FDA-Public Use
  Company Number: US-CELGENEUS-163-20785-11023216

PATIENT
  Sex: Female

DRUGS (17)
  1. CELEBREX [Concomitant]
     Indication: CASTLEMAN'S DISEASE
     Dosage: 200 MILLIGRAM
     Route: 048
     Dates: start: 20090901
  2. FLUCONAZOLE [Concomitant]
     Indication: INFECTION PROPHYLAXIS
     Dosage: 400 MILLIGRAM
     Route: 048
  3. AZITHROMYCIN [Concomitant]
     Indication: INFECTION PROPHYLAXIS
     Dosage: 500 MILLIGRAM
     Route: 048
  4. ATIVAN [Concomitant]
     Indication: ANXIETY
     Dosage: .25 MILLIGRAM
     Route: 048
  5. AMLODIPINE BESYLATE [Concomitant]
     Indication: BLOOD PRESSURE
     Dosage: 5 MILLIGRAM
     Route: 048
  6. BACTRIM DS [Concomitant]
     Indication: INFECTION PROPHYLAXIS
     Dosage: 800MG/160MG
     Route: 048
     Dates: start: 20090801
  7. ZOFRAN [Concomitant]
     Indication: NAUSEA
     Dosage: 4 MILLIGRAM
     Route: 048
  8. CELEXA [Concomitant]
     Dosage: 10 MILLIGRAM
     Route: 048
  9. ZOFRAN [Concomitant]
     Indication: VOMITING
  10. ALBUTEROL [Concomitant]
     Dosage: 2 PUFFS
     Route: 055
  11. ACYCLOVIR [Concomitant]
     Indication: INFECTION PROPHYLAXIS
     Dosage: 200 MILLIGRAM
     Route: 048
  12. THALOMID [Suspect]
     Indication: LYMPHOMA
     Dosage: 100 MILLIGRAM
     Route: 048
     Dates: start: 20090801
  13. DEPO-PROVERA [Concomitant]
     Dosage: 150 MILLIGRAM
     Route: 030
     Dates: start: 20090801
  14. MIRALAX [Concomitant]
     Indication: CONSTIPATION
     Dosage: 17 GRAM
     Route: 048
  15. PRILOSEC [Concomitant]
     Indication: PROPHYLAXIS AGAINST GASTROINTESTINAL ULCER
     Dosage: 20 MILLIGRAM
     Route: 048
     Dates: start: 20090801
  16. HYDROCHLOROTHIAZIDE [Concomitant]
     Indication: DIURETIC THERAPY
     Dosage: 25 MILLIGRAM
     Route: 048
  17. PREDNISONE [Concomitant]
     Indication: PROPHYLAXIS AGAINST TRANSPLANT REJECTION
     Dosage: 15 MILLIGRAM
     Route: 048

REACTIONS (2)
  - RESPIRATORY DISTRESS [None]
  - OBLITERATIVE BRONCHIOLITIS [None]
